FAERS Safety Report 13214546 (Version 2)
Quarter: 2017Q3

REPORT INFORMATION
  Report Type: Report from Study
  Country: US (occurrence: US)
  Receive Date: 20170210
  Receipt Date: 20170706
  Transmission Date: 20171127
  Serious: Yes (Death, Hospitalization)
  Sender: FDA-Public Use
  Company Number: US-ACTELION-A-US2016-130912

PATIENT
  Age: 57 Year
  Sex: Male

DRUGS (1)
  1. OPSUMIT [Suspect]
     Active Substance: MACITENTAN
     Indication: PULMONARY ARTERIAL HYPERTENSION
     Dosage: 10 MG, QD
     Route: 048
     Dates: start: 20140902

REACTIONS (6)
  - Cough [Recovered/Resolved]
  - Pulseless electrical activity [Fatal]
  - Respiratory failure [Fatal]
  - Dizziness [Recovered/Resolved]
  - Cardiac arrest [Fatal]
  - Dysphagia [Recovered/Resolved]

NARRATIVE: CASE EVENT DATE: 20151213
